FAERS Safety Report 8568686-8 (Version None)
Quarter: 2012Q3

REPORT INFORMATION
  Report Type: 
  Country: None (occurrence: None)
  Receive Date: 20120803
  Receipt Date: 20120510
  Transmission Date: 20120928
  Serious: No
  Sender: FDA-Public Use
  Company Number: US-ABBOTT-12P-163-0934209-00

PATIENT
  Sex: Male
  Weight: 64.468 kg

DRUGS (2)
  1. NIASPAN [Suspect]
     Indication: HIGH DENSITY LIPOPROTEIN DECREASED
     Dosage: 500 MG
     Dates: start: 20120201
  2. NIASPAN [Suspect]
     Dosage: 1000 MG
     Dates: start: 20120325

REACTIONS (2)
  - ABDOMINAL PAIN [None]
  - ABDOMINAL DISCOMFORT [None]
